FAERS Safety Report 5355272-6 (Version None)
Quarter: 2007Q2

REPORT INFORMATION
  Report Type: 
  Country: None (occurrence: None)
  Receive Date: 20070611
  Receipt Date: 20070604
  Transmission Date: 20071010
  Serious: Yes (Death)
  Sender: FDA-Public Use
  Company Number: 163-20785-07041511

PATIENT
  Age: 75 Year
  Sex: Female
  Weight: 46.2669 kg

DRUGS (20)
  1. THALOMID [Suspect]
     Indication: MULTIPLE MYELOMA
     Dosage: 400 MG, 8 IN 1 D, ORAL
     Route: 048
     Dates: start: 20061114, end: 20070403
  2. AMBIEN [Concomitant]
  3. ANUSOL-HC (ANUSOL-HC) (SUPPOSITORY) [Concomitant]
  4. ARANESP [Concomitant]
  5. FLOVENT HFA (FLUTICASONE PROPIONATE)(AEROSOL  FOR INHALATION) [Concomitant]
  6. MIACALCIN [Concomitant]
  7. MS CONTIN [Concomitant]
  8. NEPHROCAPS (NEPHROCAPS) [Concomitant]
  9. VITAMIN B COMPLEX WITH C (BEMINAL WITH C FORTIS) [Concomitant]
  10. FOLIC ACID [Concomitant]
  11. NEUTRA-PHOS (NEUTRA-PHOS) (POWDER) [Concomitant]
  12. NIACIN [Concomitant]
  13. PAXIL [Concomitant]
  14. POTASSIUM CHLORIDE (POTASSIUM CHLORIDE)(POWDER) [Concomitant]
  15. PROTONIX (PANTOPRAZOLE) (TABLETS) [Concomitant]
  16. ROXANOL (MORPHINE SULFATE) (20 MILLIGRAM/MILLILITERS) [Concomitant]
  17. SENNA S (SENNA) [Concomitant]
  18. SORBITOL (SORBITOL) (LIQUID) [Concomitant]
  19. DECADRON [Concomitant]
  20. FENTANYL (FENTANYL) (POULTICE OR PATCH) [Concomitant]

REACTIONS (2)
  - CHRONIC OBSTRUCTIVE PULMONARY DISEASE [None]
  - RENAL FAILURE [None]
